FAERS Safety Report 7750206-9 (Version None)
Quarter: 2011Q3

REPORT INFORMATION
  Report Type: 
  Country: None (occurrence: None)
  Receive Date: 20110914
  Receipt Date: 20110912
  Transmission Date: 20111222
  Serious: Yes (Other)
  Sender: FDA-Public Use
  Company Number: JP-PFIZER INC-2011200858

PATIENT
  Age: 51 Year
  Sex: Female

DRUGS (6)
  1. DORNER [Concomitant]
     Dosage: 20 MG DAILY
     Route: 048
     Dates: start: 20110516
  2. ZOLOFT [Suspect]
     Dosage: 25 MG DAILY
     Route: 048
     Dates: start: 20110819, end: 20110826
  3. ADALAT [Concomitant]
     Dosage: 20 MG DAILY
     Route: 048
     Dates: start: 20110516
  4. ZOLOFT [Suspect]
     Dosage: 50 MG DAILY
     Route: 048
     Dates: start: 20110827
  5. PLETAL [Concomitant]
     Dosage: 100 MG DAILY
     Route: 048
     Dates: start: 20110516
  6. NESPO [Concomitant]
     Dosage: 60 MG DAILY
     Route: 042
     Dates: start: 20110624

REACTIONS (1)
  - THROMBOSIS IN DEVICE [None]
